FAERS Safety Report 11398764 (Version 4)
Quarter: 2016Q1

REPORT INFORMATION
  Report Type: Report from Study
  Country: US (occurrence: US)
  Receive Date: 20150820
  Receipt Date: 20160317
  Transmission Date: 20160525
  Serious: No
  Sender: FDA-Public Use
  Company Number: PHHY2014US134744

PATIENT
  Age: 49 Year
  Sex: Female

DRUGS (1)
  1. GILENYA [Suspect]
     Active Substance: FINGOLIMOD HYDROCHLORIDE
     Indication: MULTIPLE SCLEROSIS
     Dosage: UNK, QD
     Route: 048

REACTIONS (11)
  - Blood cholesterol increased [Unknown]
  - Blood alkaline phosphatase increased [Unknown]
  - Lymphocyte count decreased [Unknown]
  - Aspartate aminotransferase increased [Unknown]
  - Seborrhoeic dermatitis [Unknown]
  - Rosacea [Unknown]
  - Alanine aminotransferase increased [Unknown]
  - Blood triglycerides increased [Unknown]
  - Eczema asteatotic [Recovered/Resolved]
  - Blood glucose increased [Unknown]
  - Blood magnesium decreased [Unknown]

NARRATIVE: CASE EVENT DATE: 20131111
